FAERS Safety Report 15895017 (Version 1)
Quarter: 2019Q1

REPORT INFORMATION
  Report Type: Spontaneous
  Country: US (occurrence: US)
  Receive Date: 20190131
  Receipt Date: 20190131
  Transmission Date: 20190417
  Serious: No
  Sender: FDA-Public Use
  Company Number: US-HORIZON-PRO-0018-2019

PATIENT
  Age: 3 Year
  Sex: Female

DRUGS (5)
  1. CARNITOR SF [Concomitant]
     Active Substance: LEVOCARNITINE
  2. LIDOCAINE-PRILOCAINE [Concomitant]
     Active Substance: LIDOCAINE\PRILOCAINE
  3. NUTROPIN [Concomitant]
     Active Substance: SOMATROPIN
  4. POTASSIUM PHOSPHATE [Concomitant]
     Active Substance: POTASSIUM PHOSPHATE
  5. PROCYSBI [Suspect]
     Active Substance: CYSTEAMINE BITARTRATE
     Indication: CYSTINOSIS
     Dosage: TAKE 300 MG (12 CAPSULES) TID VIA G-TUBE, TOTAL DAILY DOSE IS 600 MG

REACTIONS (2)
  - Vomiting [Not Recovered/Not Resolved]
  - Productive cough [Not Recovered/Not Resolved]
